FAERS Safety Report 8399279 (Version 3)
Quarter: 2012Q4

REPORT INFORMATION
  Report Type: 
  Country: US (occurrence: US)
  Receive Date: 20120210
  Receipt Date: 20121124
  Transmission Date: 20130627
  Serious: Yes (Hospitalization)
  Sender: FDA-Public Use
  Company Number: US-BAYER-2012-012229

PATIENT
  Age: 22 Year
  Sex: Female
  Weight: 91 kg

DRUGS (2)
  1. YAZ [Suspect]
     Dosage: UNK
     Dates: start: 2003, end: 2008
  2. YASMIN [Suspect]
     Dosage: UNK
     Dates: start: 2003, end: 2008

REACTIONS (1)
  - Cholecystectomy [None]
